FAERS Safety Report 12705250 (Version 1)
Quarter: 2016Q3

REPORT INFORMATION
  Report Type: Spontaneous
  Country: CN (occurrence: CN)
  Receive Date: 20160831
  Receipt Date: 20160831
  Transmission Date: 20161109
  Serious: Yes (Hospitalization)
  Sender: FDA-Public Use
  Company Number: CN-ELI_LILLY_AND_COMPANY-CN201608012705

PATIENT
  Age: 65 Year
  Sex: Female
  Weight: 64 kg

DRUGS (5)
  1. HUMULIN N [Suspect]
     Active Substance: INSULIN HUMAN
     Dosage: 22 IU, NOON
     Route: 058
     Dates: start: 2009
  2. HUMULIN R [Suspect]
     Active Substance: INSULIN HUMAN
     Indication: DIABETES MELLITUS
     Dosage: 14 IU, QD BEFORE SLEEP
     Route: 058
     Dates: start: 2009
  3. HUMULIN N [Suspect]
     Active Substance: INSULIN HUMAN
     Indication: DIABETES MELLITUS
     Dosage: 26 IU, EACH MORNING
     Route: 058
     Dates: start: 2009
  4. HUMULIN N [Suspect]
     Active Substance: INSULIN HUMAN
     Dosage: 24 IU, EACH EVENING
     Route: 058
     Dates: start: 2009
  5. GLUCOBAY [Concomitant]
     Active Substance: ACARBOSE
     Indication: PRODUCT USED FOR UNKNOWN INDICATION
     Dosage: UNK, UNKNOWN
     Route: 065

REACTIONS (6)
  - Hypersensitivity [Unknown]
  - Lung infection [Unknown]
  - Hypertension [Unknown]
  - Blood glucose increased [Unknown]
  - Cardiac disorder [Unknown]
  - Cardiac disorder [Unknown]

NARRATIVE: CASE EVENT DATE: 201608
